FAERS Safety Report 21177808 (Version 1)
Quarter: 2022Q3

REPORT INFORMATION
  Report Type: Spontaneous
  Country: US (occurrence: None)
  Receive Date: 20220804
  Receipt Date: 20220804
  Transmission Date: 20221027
  Serious: No
  Sender: FDA-Public Use
  Company Number: None

PATIENT
  Age: 55 Year
  Sex: Male

DRUGS (1)
  1. SIMPONI [Suspect]
     Active Substance: GOLIMUMAB
     Indication: Rheumatoid arthritis
     Dosage: 50MG  ONCE MONTHLY SUBCUTANEOUS?
     Route: 058
     Dates: start: 20220707

REACTIONS (2)
  - Injection site mass [None]
  - Device defective [None]

NARRATIVE: CASE EVENT DATE: 20220803
